FAERS Safety Report 16553242 (Version 1)
Quarter: 2019Q3

REPORT INFORMATION
  Report Type: Report from Study
  Country: TW (occurrence: TW)
  Receive Date: 20190710
  Receipt Date: 20190710
  Transmission Date: 20191004
  Serious: Yes (Hospitalization)
  Sender: FDA-Public Use
  Company Number: TW-TAKEDA-2019TUS041685

PATIENT
  Age: 40 Year
  Sex: Male

DRUGS (3)
  1. PREDNISOLONE. [Concomitant]
     Active Substance: PREDNISOLONE
     Dosage: UNK
     Dates: start: 20160718
  2. VEDOLIZUMAB [Suspect]
     Active Substance: VEDOLIZUMAB
     Indication: CROHN^S DISEASE
     Dosage: UNK
     Route: 042
     Dates: start: 20181004, end: 20190704
  3. MESALAZINE [Concomitant]
     Active Substance: MESALAMINE
     Dosage: UNK
     Dates: start: 20160718

REACTIONS (2)
  - Enterovesical fistula [Unknown]
  - Nephropathy [Unknown]

NARRATIVE: CASE EVENT DATE: 20190624
